FAERS Safety Report 10605831 (Version 2)
Quarter: 2014Q4

REPORT INFORMATION
  Report Type: Spontaneous
  Country: US (occurrence: US)
  Receive Date: 20141125
  Receipt Date: 20141209
  Transmission Date: 20150529
  Serious: Yes (Other)
  Sender: FDA-Public Use
  Company Number: US-RB-070334-14

PATIENT
  Age: 57 Year
  Sex: Male

DRUGS (1)
  1. MUCINEX D MAXIMUM STRENGTH [Suspect]
     Active Substance: GUAIFENESIN\PSEUDOEPHEDRINE HYDROCHLORIDE
     Indication: PRODUCT USED FOR UNKNOWN INDICATION
     Dosage: PRODUCT LAST USED ON: 10-NOV-2014 AT 8 PM; AMOUNT USED: 2 TABLETS
     Route: 065
     Dates: start: 20141110

REACTIONS (4)
  - Hyperhidrosis [Unknown]
  - Nervousness [Unknown]
  - Tremor [Unknown]
  - Agitation [Unknown]

NARRATIVE: CASE EVENT DATE: 20141110
